FAERS Safety Report 19196595 (Version 3)
Quarter: 2021Q3

REPORT INFORMATION
  Report Type: Report from Study
  Country: JP (occurrence: JP)
  Receive Date: 20210429
  Receipt Date: 20210907
  Transmission Date: 20211014
  Serious: Yes (Life-Threatening, Hospitalization, Other)
  Sender: FDA-Public Use
  Company Number: JP-PFIZER INC-2021446375

PATIENT
  Age: 54 Year
  Sex: Male
  Weight: 85 kg

DRUGS (10)
  1. LORATADINE. [Concomitant]
     Active Substance: LORATADINE
     Indication: RHINITIS ALLERGIC
     Dosage: 10 MG, 1X/DAY
     Route: 048
     Dates: end: 20210427
  2. AMALUET [Concomitant]
     Active Substance: AMLODIPINE BESYLATE\ATORVASTATIN CALCIUM
     Indication: HYPERTENSION
     Dosage: 1 DF, 1X/DAY
     Route: 048
     Dates: end: 20210427
  3. LOXOPROFEN [Concomitant]
     Active Substance: LOXOPROFEN
     Indication: BACK PAIN
     Dosage: 60 MG, 3X/DAY
     Route: 048
     Dates: end: 20210430
  4. REBAMIPIDE [Concomitant]
     Active Substance: REBAMIPIDE
     Indication: GASTRITIS
     Dosage: 100 MG, 3X/DAY
     Route: 048
     Dates: end: 20210427
  5. LIALDA [Concomitant]
     Active Substance: MESALAMINE
     Indication: COLITIS ULCERATIVE
     Dosage: 4800 MG, 1X/DAY
     Route: 048
     Dates: end: 20210427
  6. FAMOTIDINE. [Concomitant]
     Active Substance: FAMOTIDINE
     Indication: GASTRITIS
     Dosage: 10 MG, 2X/DAY
     Route: 048
     Dates: end: 20210427
  7. AMALUET [Concomitant]
     Active Substance: AMLODIPINE BESYLATE\ATORVASTATIN CALCIUM
     Indication: HYPERLIPIDAEMIA
  8. XELJANZ [Suspect]
     Active Substance: TOFACITINIB CITRATE
     Indication: COLITIS ULCERATIVE
     Dosage: 5 MG, 2X/DAY
     Route: 048
     Dates: start: 20190513, end: 20210427
  9. LIMAPROST ALFADEX [Concomitant]
     Active Substance: LIMAPROST
     Indication: LUMBAR SPINAL STENOSIS
     Dosage: 5 UG, 3X/DAY
     Route: 048
  10. IRBESARTAN. [Concomitant]
     Active Substance: IRBESARTAN
     Indication: HYPERTENSION
     Dosage: 100 MG, 1X/DAY
     Route: 048
     Dates: end: 20210127

REACTIONS (2)
  - Squamous cell carcinoma [Recovering/Resolving]
  - Renal neoplasm [Not Recovered/Not Resolved]

NARRATIVE: CASE EVENT DATE: 20210413
